FAERS Safety Report 7968413-9 (Version None)
Quarter: 2011Q4

REPORT INFORMATION
  Report Type: 
  Country: None (occurrence: None)
  Receive Date: 20111209
  Receipt Date: 20111130
  Transmission Date: 20120403
  Serious: Yes (Other)
  Sender: FDA-Public Use
  Company Number: NL-SANOFI-AVENTIS-2010SA034856

PATIENT
  Age: 81 Year
  Sex: Female

DRUGS (9)
  1. ARTHROTEC [Concomitant]
     Route: 065
     Dates: start: 19981222
  2. HYDROCHLOROTHIAZIDE [Concomitant]
     Route: 065
  3. LANSOPRAZOLE [Concomitant]
     Route: 065
  4. FUROSEMIDE [Suspect]
     Route: 065
  5. NITRAZEPAM [Concomitant]
     Route: 065
  6. DRIDASE [Concomitant]
     Route: 065
  7. FUROSEMIDE [Suspect]
     Route: 065
     Dates: start: 19990115
  8. BETOPTIC [Concomitant]
     Route: 065
  9. INHIBIN ^ASTA MEDICA^ [Concomitant]
     Route: 065

REACTIONS (5)
  - POLYDIPSIA [None]
  - DECREASED APPETITE [None]
  - FATIGUE [None]
  - DIABETES MELLITUS [None]
  - HYPERGLYCAEMIA [None]
